FAERS Safety Report 18654052 (Version 2)
Quarter: 2021Q4

REPORT INFORMATION
  Report Type: Report from Study
  Country: CA (occurrence: CA)
  Receive Date: 20201223
  Receipt Date: 20211112
  Transmission Date: 20220303
  Serious: Yes (Other)
  Sender: FDA-Public Use
  Company Number: CA-ABBVIE-20K-028-3703557-00

PATIENT
  Sex: Female

DRUGS (2)
  1. HUMIRA [Suspect]
     Active Substance: ADALIMUMAB
     Indication: Ankylosing spondylitis
     Route: 058
     Dates: start: 20181130
  2. CORTISONE [Suspect]
     Active Substance: CORTISONE
     Indication: Product used for unknown indication
     Route: 065

REACTIONS (24)
  - Loss of consciousness [Recovered/Resolved]
  - Wrist fracture [Not Recovered/Not Resolved]
  - Cerebrovascular accident [Unknown]
  - Myocardial infarction [Unknown]
  - Loss of consciousness [Unknown]
  - Orthostatic hypotension [Not Recovered/Not Resolved]
  - Fall [Recovered/Resolved]
  - Back pain [Not Recovered/Not Resolved]
  - Anger [Unknown]
  - Cardiac murmur [Unknown]
  - Arrhythmia [Unknown]
  - Dumping syndrome [Unknown]
  - Gastrooesophageal reflux disease [Unknown]
  - Hypophagia [Unknown]
  - Adrenal insufficiency [Not Recovered/Not Resolved]
  - Renal disorder [Unknown]
  - Pain [Not Recovered/Not Resolved]
  - Gastrooesophageal sphincter insufficiency [Unknown]
  - Cortisol decreased [Unknown]
  - Arthralgia [Unknown]
  - Arthritis [Unknown]
  - Diabetic neuropathy [Unknown]
  - Sensory disturbance [Unknown]
  - Rib fracture [Unknown]

NARRATIVE: CASE EVENT DATE: 20190101
